FAERS Safety Report 15704787 (Version 1)
Quarter: 2018Q4

REPORT INFORMATION
  Report Type: Spontaneous
  Country: US (occurrence: US)
  Receive Date: 20181210
  Receipt Date: 20181210
  Transmission Date: 20190205
  Serious: Yes (Other)
  Sender: FDA-Public Use
  Company Number: US-SA-2018SA008822

PATIENT
  Age: 62 Year
  Sex: Female
  Weight: 92 kg

DRUGS (3)
  1. TAXOTERE [Suspect]
     Active Substance: DOCETAXEL
     Dosage: 153 MG, Q3W
     Route: 042
     Dates: start: 20130425, end: 20130425
  2. TAXOTERE [Suspect]
     Active Substance: DOCETAXEL
     Dosage: 153 MG, Q3W
     Route: 042
     Dates: start: 20130808, end: 20130808
  3. PARAPLATIN [Concomitant]
     Active Substance: CARBOPLATIN

REACTIONS (2)
  - Alopecia [Not Recovered/Not Resolved]
  - Psychological trauma [Unknown]

NARRATIVE: CASE EVENT DATE: 201307
